FAERS Safety Report 9939130 (Version 5)
Quarter: 2014Q2

REPORT INFORMATION
  Report Type: Report from Study
  Country: CN (occurrence: CN)
  Receive Date: 20140303
  Receipt Date: 20140512
  Transmission Date: 20141212
  Serious: Yes (Hospitalization, Disabling)
  Sender: FDA-Public Use
  Company Number: CN-ASTELLAS-2014US002073

PATIENT
  Age: 56 Year
  Sex: Female

DRUGS (1)
  1. ERLOTINIB [Suspect]
     Indication: NON-SMALL CELL LUNG CANCER
     Route: 048
     Dates: start: 20130409

REACTIONS (2)
  - Immobile [Unknown]
  - Monoplegia [Unknown]
